FAERS Safety Report 24028290 (Version 1)
Quarter: 2024Q2

REPORT INFORMATION
  Report Type: Spontaneous
  Country: ES (occurrence: ES)
  Receive Date: 20240628
  Receipt Date: 20240628
  Transmission Date: 20240716
  Serious: Yes (Hospitalization, Other)
  Sender: FDA-Public Use
  Company Number: None

PATIENT
  Age: 44 Year
  Sex: Male
  Weight: 74 kg

DRUGS (4)
  1. LACOSAMIDE [Suspect]
     Active Substance: LACOSAMIDE
     Indication: Epilepsy
  2. DEXAMETHASONE [Suspect]
     Active Substance: DEXAMETHASONE
     Indication: Epilepsy
  3. KEPPRA [Suspect]
     Active Substance: LEVETIRACETAM
     Indication: Epilepsy
  4. PEMIGATINIB [Concomitant]
     Active Substance: PEMIGATINIB
     Dates: start: 20230928, end: 20231103

REACTIONS (3)
  - Drug withdrawal convulsions [Recovered/Resolved]
  - Glioblastoma [Unknown]
  - Disease progression [Unknown]

NARRATIVE: CASE EVENT DATE: 20231029
